FAERS Safety Report 5809015-X (Version None)
Quarter: 2008Q3

REPORT INFORMATION
  Report Type: 
  Country: None (occurrence: None)
  Receive Date: 20080710
  Receipt Date: 20080710
  Transmission Date: 20090109
  Serious: No
  Sender: FDA-Public Use
  Company Number: None

PATIENT
  Sex: Female
  Weight: 81.6475 kg

DRUGS (7)
  1. CIPROFLOXACIN 500 MG TABS RANBA [Suspect]
     Indication: BACTERIAL DIARRHOEA
     Dosage: 500 MG BID PO
     Route: 048
     Dates: start: 20080604, end: 20080606
  2. LIPITOR [Concomitant]
  3. LISINOPRIL [Concomitant]
  4. LAMICTAL [Concomitant]
  5. ASPIRIN [Concomitant]
  6. CALCIUM SUPPLEMENTATION [Concomitant]
  7. CLONAZEPAM [Concomitant]

REACTIONS (5)
  - ARTHRALGIA [None]
  - BLOOD CREATINE PHOSPHOKINASE INCREASED [None]
  - MOBILITY DECREASED [None]
  - MYALGIA [None]
  - TENDON PAIN [None]
